FAERS Safety Report 23038643 (Version 3)
Quarter: 2023Q4

REPORT INFORMATION
  Report Type: Report from Study
  Country: KZ (occurrence: KZ)
  Receive Date: 20231006
  Receipt Date: 20231114
  Transmission Date: 20240110
  Serious: Yes (Other)
  Sender: FDA-Public Use
  Company Number: KZ-SAREPTA THERAPEUTICS INC.-SRP2023-003843

PATIENT
  Sex: Male

DRUGS (1)
  1. GOLODIRSEN [Suspect]
     Active Substance: GOLODIRSEN
     Indication: Product used for unknown indication
     Dosage: UNK
     Dates: start: 20221121, end: 20230907

REACTIONS (1)
  - Epilepsy [Recovered/Resolved]

NARRATIVE: CASE EVENT DATE: 20230101
